FAERS Safety Report 9795907 (Version 1)
Quarter: 2014Q1

REPORT INFORMATION
  Report Type: Spontaneous
  Country: JP (occurrence: JP)
  Receive Date: 20140103
  Receipt Date: 20140103
  Transmission Date: 20141002
  Serious: Yes (Hospitalization, Other)
  Sender: FDA-Public Use
  Company Number: JP-NOVOPROD-396783

PATIENT
  Age: 65 Year
  Sex: 0

DRUGS (4)
  1. NOVORAPID CHU FLEXPEN [Suspect]
     Indication: TYPE 2 DIABETES MELLITUS
     Dosage: 160 IU, QD
     Route: 058
  2. NOVORAPID CHU FLEXPEN [Suspect]
     Dosage: UNK (DOSE DECREASED)
     Route: 058
  3. LEVEMIR CHU FLEXPEN [Suspect]
     Indication: TYPE 2 DIABETES MELLITUS
     Dosage: 40 IU, QD
     Route: 058
  4. LEVEMIR CHU FLEXPEN [Suspect]
     Dosage: UNK (DOSE DECREASED)
     Route: 058

REACTIONS (3)
  - Cardiac failure [Recovered/Resolved]
  - Diabetes mellitus inadequate control [Recovered/Resolved]
  - Hypoglycaemia [Recovered/Resolved]
